FAERS Safety Report 9442479 (Version 1)
Quarter: 2013Q3

REPORT INFORMATION
  Report Type: Spontaneous
  Country: JP (occurrence: JP)
  Receive Date: 20130806
  Receipt Date: 20130806
  Transmission Date: 20140515
  Serious: Yes (Other)
  Sender: FDA-Public Use
  Company Number: JP-PFIZER INC-2013226809

PATIENT
  Age: 50 Year
  Sex: Male

DRUGS (2)
  1. LYRICA [Suspect]
     Indication: NEURALGIA
     Dosage: 150 MG/DAY
     Route: 048
     Dates: start: 20130523
  2. DIOVAN [Concomitant]
     Dosage: UNK

REACTIONS (4)
  - Cerebral infarction [Unknown]
  - Deafness [Recovering/Resolving]
  - Dizziness [Recovering/Resolving]
  - Memory impairment [Recovering/Resolving]
